FAERS Safety Report 7532999-9 (Version None)
Quarter: 2011Q2

REPORT INFORMATION
  Report Type: 
  Country: None (occurrence: None)
  Receive Date: 20110607
  Receipt Date: 20110607
  Transmission Date: 20111010
  Serious: No
  Sender: FDA-Public Use
  Company Number: None

PATIENT
  Age: 40 Year
  Sex: Male
  Weight: 86.1834 kg

DRUGS (1)
  1. PRILOSEC [Suspect]
     Dosage: 20 MG PO
     Route: 048

REACTIONS (3)
  - ECONOMIC PROBLEM [None]
  - MUSCLE SPASMS [None]
  - IMPAIRED WORK ABILITY [None]
